FAERS Safety Report 9104978 (Version 1)
Quarter: 2013Q1

REPORT INFORMATION
  Report Type: Report from Study
  Country: CO (occurrence: CO)
  Receive Date: 20130220
  Receipt Date: 20130220
  Transmission Date: 20140127
  Serious: Yes (Death)
  Sender: FDA-Public Use
  Company Number: CO-SANOFI-AVENTIS-2013SA015374

PATIENT
  Age: 36 Year
  Sex: Male

DRUGS (1)
  1. INSULIN GLARGINE [Suspect]
     Indication: DIABETES MELLITUS
     Route: 058

REACTIONS (1)
  - Death [Fatal]
